FAERS Safety Report 7270789-5 (Version None)
Quarter: 2011Q1

REPORT INFORMATION
  Report Type: 
  Country: None (occurrence: None)
  Receive Date: 20110202
  Receipt Date: 20110127
  Transmission Date: 20110831
  Serious: Yes (Other)
  Sender: FDA-Public Use
  Company Number: US-ALLERGAN-1101282US

PATIENT
  Age: 73 Year
  Sex: Male

DRUGS (2)
  1. OZURDEX [Suspect]
     Indication: RETINAL VEIN OCCLUSION
     Dosage: UNK
     Dates: start: 20101209, end: 20101209
  2. OZURDEX [Suspect]
     Dosage: UNK
     Dates: start: 20100430, end: 20100430

REACTIONS (2)
  - DRUG INEFFECTIVE [None]
  - ENDOPHTHALMITIS [None]
